FAERS Safety Report 15608075 (Version 1)
Quarter: 2018Q4

REPORT INFORMATION
  Report Type: Spontaneous
  Country: FR (occurrence: FR)
  Receive Date: 20181112
  Receipt Date: 20181112
  Transmission Date: 20190205
  Serious: Yes (Hospitalization)
  Sender: FDA-Public Use
  Company Number: FR-PFIZER INC-2018453443

PATIENT
  Age: 76 Year
  Sex: Female
  Weight: 82.9 kg

DRUGS (16)
  1. LAMPRENE [CLOFAZIMINE] [Concomitant]
  2. DALACINE [Suspect]
     Active Substance: CLINDAMYCIN
     Indication: NECROTISING FASCIITIS
     Dosage: 6 DF, 1X/DAY
     Route: 048
     Dates: start: 20180906, end: 20180912
  3. PENICILLIN G SODIUM. [Suspect]
     Active Substance: PENICILLIN G SODIUM
     Indication: ERYSIPELAS
     Dosage: 150 MILLION IU, 1X/DAY
     Route: 041
     Dates: start: 20180901, end: 20180903
  4. PIPERACILLIN SODIUM [Suspect]
     Active Substance: PIPERACILLIN SODIUM
     Indication: ERYSIPELAS
     Dosage: 4 G, EVERY 8 HOURS
     Route: 042
     Dates: start: 20180903, end: 20180914
  5. ETHAMBUTOL DIHYDROCHLORIDE [Concomitant]
     Active Substance: ETHAMBUTOL HYDROCHLORIDE
  6. GAVISCON [ALGINIC ACID;ALUMINIUM HYDROXIDE;SODIUM ALGINATE;SODIUM BICA [Concomitant]
  7. DIFFU K [Concomitant]
     Active Substance: POTASSIUM CHLORIDE
  8. PANTOPRAZOLE [Concomitant]
     Active Substance: PANTOPRAZOLE
  9. CLARITHROMYCIN. [Concomitant]
     Active Substance: CLARITHROMYCIN
  10. IMOVANE [Concomitant]
     Active Substance: ZOPICLONE
  11. FRAGMINE [Suspect]
     Active Substance: DALTEPARIN SODIUM
     Indication: PROPHYLAXIS
     Dosage: 1 DF, 1X/DAY
     Route: 058
     Dates: start: 20180901, end: 20180921
  12. GENTAMICIN. [Suspect]
     Active Substance: GENTAMICIN
     Indication: NECROTISING FASCIITIS
     Dosage: 480 MG, 1X/DAY
     Route: 042
     Dates: start: 20180906, end: 20180908
  13. LASILIX [FUROSEMIDE] [Concomitant]
  14. LIPANTHYL [Concomitant]
     Active Substance: FENOFIBRATE
  15. TAZOBACTAM [Suspect]
     Active Substance: TAZOBACTAM
     Indication: ERYSIPELAS
     Dosage: 500 MG, EVERY 8 HOURS
     Route: 042
     Dates: start: 20180903, end: 20180914
  16. SINGULAIR [Concomitant]
     Active Substance: MONTELUKAST SODIUM

REACTIONS (1)
  - Drug reaction with eosinophilia and systemic symptoms [Recovering/Resolving]

NARRATIVE: CASE EVENT DATE: 20180910
